FAERS Safety Report 8586318 (Version 4)
Quarter: 2013Q2

REPORT INFORMATION
  Report Type: Spontaneous
  Country: AR (occurrence: AR)
  Receive Date: 20120530
  Receipt Date: 20130513
  Transmission Date: 20140414
  Serious: Yes (Hospitalization)
  Sender: FDA-Public Use
  Company Number: AR-ROCHE-1073268

PATIENT
  Age: 36 Year
  Sex: Female

DRUGS (3)
  1. XOLAIR [Suspect]
     Indication: ASTHMA
     Route: 058
     Dates: start: 201110, end: 201206
  2. XOLAIR [Suspect]
     Route: 065
     Dates: start: 201206
  3. XOLAIR [Suspect]
     Route: 065
     Dates: start: 201207

REACTIONS (2)
  - Pneumonia [Recovered/Resolved]
  - Asthmatic crisis [Recovered/Resolved]
